FAERS Safety Report 11668766 (Version 9)
Quarter: 2016Q4

REPORT INFORMATION
  Report Type: Spontaneous
  Country: US (occurrence: US)
  Receive Date: 20151027
  Receipt Date: 20161130
  Transmission Date: 20170206
  Serious: No
  Sender: FDA-Public Use
  Company Number: US-ACTELION PHARMACEUTICALS US, INC.-A-NJ2015-124444

PATIENT
  Age: 66 Year
  Sex: Female
  Weight: 72.56 kg

DRUGS (6)
  1. ADEMPAS [Concomitant]
     Active Substance: RIOCIGUAT
  2. OPSUMIT [Suspect]
     Active Substance: MACITENTAN
     Indication: PULMONARY HYPERTENSION
     Dosage: 10 MG, QD
     Route: 048
     Dates: start: 20150220, end: 2016
  3. TYVASO [Suspect]
     Active Substance: TREPROSTINIL
     Indication: PULMONARY HYPERTENSION
     Dosage: 18-54 MCG (3-9 BREATHS), QID
     Route: 055
     Dates: start: 20150227
  4. OXYGEN. [Concomitant]
     Active Substance: OXYGEN
     Dosage: 4 L, UNK
  5. OPSUMIT [Suspect]
     Active Substance: MACITENTAN
     Dosage: UNK
     Route: 048
  6. OXYGEN. [Concomitant]
     Active Substance: OXYGEN
     Dosage: 2 L, UNK

REACTIONS (15)
  - Pruritus generalised [Unknown]
  - Oxygen supplementation [Unknown]
  - Secretion discharge [Unknown]
  - Skin exfoliation [Unknown]
  - Dyspnoea exertional [Recovering/Resolving]
  - Fluid retention [Unknown]
  - Dermatitis [Unknown]
  - Weight decreased [Unknown]
  - Palpitations [Unknown]
  - Swelling [Unknown]
  - Walking distance test abnormal [Unknown]
  - Malaise [Unknown]
  - Dry skin [Unknown]
  - Epistaxis [Unknown]
  - Dyspnoea [Unknown]
